FAERS Safety Report 15414550 (Version 1)
Quarter: 2018Q3

REPORT INFORMATION
  Report Type: Spontaneous
  Country: GB (occurrence: GB)
  Receive Date: 20180921
  Receipt Date: 20180921
  Transmission Date: 20181010
  Serious: Yes (Hospitalization)
  Sender: FDA-Public Use
  Company Number: GB-PERRIGO-18GB009546

PATIENT
  Age: 64 Year
  Sex: Male

DRUGS (5)
  1. NIMODIPINE. [Suspect]
     Active Substance: NIMODIPINE
     Indication: INTENTIONAL OVERDOSE
     Dosage: 840 MG, UNK
     Route: 065
  2. PRAVASTATIN. [Suspect]
     Active Substance: PRAVASTATIN
     Indication: INTENTIONAL OVERDOSE
     Dosage: 840 MG, UNK
     Route: 065
  3. RANITIDINE HYDROCHLORIDE. [Suspect]
     Active Substance: RANITIDINE HYDROCHLORIDE
     Indication: INTENTIONAL OVERDOSE
     Dosage: 9 G, UNK
     Route: 065
  4. METFORMIN HYDROCHLORIDE 100MG/ML PL00427/0139 [Suspect]
     Active Substance: METFORMIN HYDROCHLORIDE
     Indication: INTENTIONAL OVERDOSE
     Dosage: 42 G, UNK
     Route: 065
  5. RISPERIDONE. [Suspect]
     Active Substance: RISPERIDONE
     Indication: INTENTIONAL OVERDOSE
     Dosage: 88 MG, UNK
     Route: 065

REACTIONS (5)
  - Brain injury [Unknown]
  - Renal failure [Unknown]
  - Intensive care unit acquired weakness [Unknown]
  - Intentional overdose [Unknown]
  - Cardiogenic shock [Recovered/Resolved with Sequelae]
